FAERS Safety Report 15037996 (Version 2)
Quarter: 2018Q3

REPORT INFORMATION
  Report Type: Report from Study
  Country: ES (occurrence: ES)
  Receive Date: 20180620
  Receipt Date: 20180716
  Transmission Date: 20181010
  Serious: No
  Sender: FDA-Public Use
  Company Number: ES-SHIRE-ES201816864

PATIENT

DRUGS (1)
  1. REVESTIVE [Suspect]
     Active Substance: TEDUGLUTIDE
     Indication: PRODUCT USED FOR UNKNOWN INDICATION
     Dosage: 0.1 ML, 1X/DAY:QD
     Route: 058

REACTIONS (2)
  - Stoma complication [Unknown]
  - Melanocytic naevus [Unknown]
